FAERS Safety Report 4595798-6 (Version None)
Quarter: 2005Q1

REPORT INFORMATION
  Report Type: 
  Country: None (occurrence: None)
  Receive Date: 20050224
  Receipt Date: 20050211
  Transmission Date: 20050727
  Serious: Yes (Life-Threatening, Hospitalization, Other)
  Sender: FDA-Public Use
  Company Number: 2005022957

PATIENT
  Age: 72 Year
  Sex: Male
  Weight: 103 kg

DRUGS (7)
  1. CELEBREX [Suspect]
     Indication: OSTEITIS DEFORMANS
     Dosage: 400 MG (200 MG, 2 IN 1 D), ORAL
     Route: 048
     Dates: start: 20010726, end: 20041208
  2. GLIMEPIRIDE [Concomitant]
  3. LOSARTAN POTASSIUM [Concomitant]
  4. GABAPENTIN [Concomitant]
  5. APOREX (DEXTROPROPOXYPHENE HYDROCHLORIDE, PARACETAMOL) [Concomitant]
  6. AMITRIPTYLINE HYDROCHLORIDE [Concomitant]
  7. CANDESARTAN CILEXETIL (CANDESARTAN CILEXETIL) [Concomitant]

REACTIONS (7)
  - ANAEMIA POSTOPERATIVE [None]
  - ANGINA UNSTABLE [None]
  - ARTERIOGRAM CORONARY ABNORMAL [None]
  - CHEST WALL PAIN [None]
  - FATIGUE [None]
  - MYOCARDIAL ISCHAEMIA [None]
  - POST PROCEDURAL PAIN [None]
